FAERS Safety Report 25254871 (Version 1)
Quarter: 2025Q2

REPORT INFORMATION
  Report Type: Spontaneous
  Country: US (occurrence: None)
  Receive Date: 20250430
  Receipt Date: 20250430
  Transmission Date: 20250717
  Serious: Yes (Hospitalization)
  Sender: FDA-CTU
  Company Number: None

PATIENT
  Age: 69 Year
  Sex: Male
  Weight: 130 kg

DRUGS (1)
  1. DOXORUBICIN HYDROCHLORIDE [Suspect]
     Active Substance: DOXORUBICIN HYDROCHLORIDE
     Dates: end: 20250414

REACTIONS (4)
  - Dehydration [None]
  - Glossodynia [None]
  - Oral pain [None]
  - Decreased appetite [None]

NARRATIVE: CASE EVENT DATE: 20250427
